FAERS Safety Report 5330617-1 (Version None)
Quarter: 2007Q2

REPORT INFORMATION
  Report Type: 
  Country: None (occurrence: None)
  Receive Date: 20070516
  Receipt Date: 20070430
  Transmission Date: 20071010
  Serious: Yes (Death, Hospitalization)
  Sender: FDA-Public Use
  Company Number: TRP_00942_2007

PATIENT
  Sex: Male

DRUGS (3)
  1. AMPHOTEC [Suspect]
     Indication: CANDIDIASIS
     Dosage: 50 MG QD
     Route: 041
  2. AMPHOTEC [Suspect]
     Indication: CANDIDIASIS
     Dosage: 100 MG QD
  3. ... [Suspect]

REACTIONS (4)
  - ANURIA [None]
  - CARDIAC FAILURE [None]
  - RENAL DISORDER [None]
  - RESPIRATORY FAILURE [None]
